FAERS Safety Report 6849088-9 (Version None)
Quarter: 2010Q3

REPORT INFORMATION
  Report Type: 
  Country: None (occurrence: None)
  Receive Date: 20100716
  Receipt Date: 20070927
  Transmission Date: 20110219
  Serious: No
  Sender: FDA-Public Use
  Company Number: US-PFIZER INC-2007081692

PATIENT
  Sex: Female
  Weight: 72.7 kg

DRUGS (8)
  1. CHANTIX [Suspect]
     Indication: SMOKING CESSATION THERAPY
     Dates: start: 20070916, end: 20070927
  2. LYRICA [Concomitant]
  3. TOPAMAX [Concomitant]
  4. ZANAFLEX [Concomitant]
  5. PROZAC [Concomitant]
  6. ESTROGENS [Concomitant]
  7. TENORMIN [Concomitant]
  8. METHADONE HCL [Concomitant]

REACTIONS (11)
  - FEELING ABNORMAL [None]
  - FEELING JITTERY [None]
  - HYPERHIDROSIS [None]
  - MIDDLE INSOMNIA [None]
  - NAUSEA [None]
  - NERVOUSNESS [None]
  - NIGHT SWEATS [None]
  - NIGHTMARE [None]
  - POOR QUALITY SLEEP [None]
  - RESTLESS LEGS SYNDROME [None]
  - TREMOR [None]
